FAERS Safety Report 11703998 (Version 1)
Quarter: 2015Q4

REPORT INFORMATION
  Report Type: Spontaneous
  Country: US (occurrence: None)
  Receive Date: 20151105
  Receipt Date: 20151105
  Transmission Date: 20160304
  Serious: Yes (Other)
  Sender: FDA-Public Use
  Company Number: None

PATIENT
  Age: 45 Year
  Sex: Female
  Weight: 133.81 kg

DRUGS (2)
  1. CHANTIX [Suspect]
     Active Substance: VARENICLINE TARTRATE
     Indication: SMOKING CESSATION THERAPY
     Route: 048
     Dates: start: 20140107, end: 20140407
  2. CHANTIX [Concomitant]
     Active Substance: VARENICLINE TARTRATE

REACTIONS (6)
  - Homeless [None]
  - Suicidal behaviour [None]
  - Loss of employment [None]
  - Educational problem [None]
  - Depression [None]
  - Crying [None]

NARRATIVE: CASE EVENT DATE: 20140107
